FAERS Safety Report 12553532 (Version 3)
Quarter: 2016Q3

REPORT INFORMATION
  Report Type: Spontaneous
  Country: US (occurrence: US)
  Receive Date: 20160713
  Receipt Date: 20160727
  Transmission Date: 20161109
  Serious: No
  Sender: FDA-Public Use
  Company Number: US-PFIZER INC-2016337919

PATIENT
  Age: 61 Year
  Sex: Male
  Weight: 88.45 kg

DRUGS (5)
  1. LYRICA [Suspect]
     Active Substance: PREGABALIN
     Indication: DIABETIC NEUROPATHY
  2. GLIPIZIDE. [Concomitant]
     Active Substance: GLIPIZIDE
     Indication: DIABETES MELLITUS
     Dosage: 20 MG, DAILY (20MG A DAY)
  3. LYRICA [Suspect]
     Active Substance: PREGABALIN
     Indication: NEURALGIA
     Dosage: 150 MG, 2X/DAY
     Dates: start: 201602, end: 20160703
  4. METFORMIN [Concomitant]
     Active Substance: METFORMIN HYDROCHLORIDE
     Indication: DIABETES MELLITUS
     Dosage: 2000 MG, DAILY (2000MG A DAY)
  5. INVOKANA [Concomitant]
     Active Substance: CANAGLIFLOZIN
     Indication: DIABETES MELLITUS
     Dosage: 100 MG, 1X/DAY

REACTIONS (9)
  - Abdominal discomfort [Not Recovered/Not Resolved]
  - Product use issue [Unknown]
  - Peripheral swelling [Unknown]
  - Weight increased [Recovered/Resolved]
  - Drug effect incomplete [Unknown]
  - Insomnia [Unknown]
  - Dizziness [Unknown]
  - Nausea [Not Recovered/Not Resolved]
  - Balance disorder [Unknown]

NARRATIVE: CASE EVENT DATE: 201604
